FAERS Safety Report 8327890-4 (Version None)
Quarter: 2012Q2

REPORT INFORMATION
  Report Type: 
  Country: None (occurrence: None)
  Receive Date: 20120502
  Receipt Date: 20120423
  Transmission Date: 20120825
  Serious: Yes (Hospitalization)
  Sender: FDA-Public Use
  Company Number: JP-VERTEX PHARMACEUTICALS INC.-AE-2012-003754

PATIENT
  Age: 69 Year
  Sex: Male

DRUGS (14)
  1. TELAVIC (TELAPREVIR) [Suspect]
     Indication: HEPATITIS C
     Route: 048
     Dates: start: 20120117, end: 20120123
  2. TELAVIC (TELAPREVIR) [Suspect]
     Route: 048
     Dates: start: 20120207, end: 20120214
  3. REBETOL [Concomitant]
     Route: 048
     Dates: start: 20120221
  4. PEG-INTRON [Concomitant]
     Indication: HEPATITIS C
     Route: 051
     Dates: start: 20120117, end: 20120117
  5. PEG-INTRON [Concomitant]
     Route: 051
     Dates: start: 20120214
  6. AMARYL [Concomitant]
     Route: 048
  7. TELAVIC (TELAPREVIR) [Suspect]
     Route: 048
     Dates: start: 20120124, end: 20120207
  8. TELAVIC (TELAPREVIR) [Suspect]
     Route: 048
     Dates: start: 20120214, end: 20120410
  9. REBETOL [Concomitant]
     Indication: HEPATITIS C
     Route: 048
     Dates: start: 20120117, end: 20120122
  10. PEG-INTRON [Concomitant]
     Route: 051
     Dates: start: 20120124, end: 20120207
  11. PEG-INTRON [Concomitant]
     Route: 051
     Dates: start: 20120410
  12. REBETOL [Concomitant]
     Route: 048
     Dates: start: 20120123, end: 20120128
  13. REBETOL [Concomitant]
     Route: 048
     Dates: start: 20120129
  14. PEG-INTRON [Concomitant]
     Route: 051
     Dates: end: 20120327

REACTIONS (6)
  - DECREASED APPETITE [None]
  - CREATININE URINE INCREASED [None]
  - ANAEMIA [None]
  - DEHYDRATION [None]
  - RENAL DISORDER [None]
  - HYPERURICAEMIA [None]
